FAERS Safety Report 19977246 (Version 1)
Quarter: 2021Q4

REPORT INFORMATION
  Report Type: Report from Study
  Country: US (occurrence: US)
  Receive Date: 20211020
  Receipt Date: 20211020
  Transmission Date: 20220304
  Serious: Yes (Hospitalization)
  Sender: FDA-Public Use
  Company Number: US-BAYER-2021A233318

PATIENT
  Age: 66 Year
  Sex: Male

DRUGS (1)
  1. ADEMPAS [Suspect]
     Active Substance: RIOCIGUAT
     Dosage: UNK
     Dates: start: 20190813, end: 2021

REACTIONS (2)
  - Hospitalisation [None]
  - Illness [None]

NARRATIVE: CASE EVENT DATE: 20210801
